FAERS Safety Report 14836053 (Version 1)
Quarter: 2018Q2

REPORT INFORMATION
  Report Type: Spontaneous
  Country: GB (occurrence: GB)
  Receive Date: 20180502
  Receipt Date: 20180502
  Transmission Date: 20180711
  Serious: Yes (Other)
  Sender: FDA-Public Use
  Company Number: GB-CONCORDIA PHARMACEUTICALS INC.-E2B_00011504

PATIENT
  Age: 59 Year
  Sex: Male

DRUGS (16)
  1. VINBLASTINE [Suspect]
     Active Substance: VINBLASTINE
     Dosage: UNK (SECOND CHEMOTHERAPY)
  2. PREDNISOLONE. [Suspect]
     Active Substance: PREDNISOLONE
     Indication: HODGKIN^S DISEASE MIXED CELLULARITY STAGE IV
     Dosage: UNK (SECOND CHEMOTHERAPY)
  3. CHLORAMBUCIL [Suspect]
     Active Substance: CHLORAMBUCIL
     Dosage: UNK (6 MONTHS PREVIOUSLY)
  4. ETOPOSIDE. [Suspect]
     Active Substance: ETOPOSIDE
     Indication: HODGKIN^S DISEASE MIXED CELLULARITY STAGE IV
     Dosage: UNK (SECOND CHEMOTHERAPY)
  5. CARBAZINE [Suspect]
     Active Substance: CARBAMAZEPINE
     Dosage: UNK (6 MONTHS PREVIOUSLY)
  6. BLEOMYCIN SULFATE [Suspect]
     Active Substance: BLEOMYCIN SULFATE
     Dosage: UNK (6 MONTHS PREVIOUSLY)
  7. VINCRISTINE SULFATE. [Suspect]
     Active Substance: VINCRISTINE SULFATE
     Dosage: UNK (SECOND CHEMOTHERAPY)
  8. PREDNISOLONE. [Suspect]
     Active Substance: PREDNISOLONE
     Dosage: UNK (6 MONTHS PREVIOUSLY)
  9. VINCRISTINE SULFATE. [Suspect]
     Active Substance: VINCRISTINE SULFATE
     Indication: HODGKIN^S DISEASE MIXED CELLULARITY STAGE IV
     Dosage: UNK (6 MONTHS PREVIOUSLY)
  10. ADRIAMYCIN [Suspect]
     Active Substance: DOXORUBICIN HYDROCHLORIDE
     Indication: HODGKIN^S DISEASE MIXED CELLULARITY STAGE IV
     Dosage: UNK (6 MONTHS PREVIOUSLY)
  11. CHLORAMBUCIL [Suspect]
     Active Substance: CHLORAMBUCIL
     Indication: HODGKIN^S DISEASE MIXED CELLULARITY STAGE IV
     Dosage: UNK (SECOND CHEMOTHERAPY)
  12. BLEOMYCIN SULFATE [Suspect]
     Active Substance: BLEOMYCIN SULFATE
     Indication: HODGKIN^S DISEASE MIXED CELLULARITY STAGE IV
     Dosage: UNK (SECOND CHEMOTHERAPY)
  13. ETOPOSIDE. [Suspect]
     Active Substance: ETOPOSIDE
     Dosage: UNK (6 MONTHS PREVIOUSLY)
  14. CARBAZINE [Suspect]
     Active Substance: CARBAMAZEPINE
     Indication: HODGKIN^S DISEASE MIXED CELLULARITY STAGE IV
     Dosage: UNK (SECOND CHEMOTHERAPY)
  15. ADRIAMYCIN [Suspect]
     Active Substance: DOXORUBICIN HYDROCHLORIDE
     Dosage: UNK (SECOND CHEMOTHERAPY)
  16. VINBLASTINE [Suspect]
     Active Substance: VINBLASTINE
     Indication: HODGKIN^S DISEASE MIXED CELLULARITY STAGE IV
     Dosage: UNK (6 MONTHS PREVIOUSLY)

REACTIONS (2)
  - Retinal haemorrhage [Not Recovered/Not Resolved]
  - Pancytopenia [Unknown]
